FAERS Safety Report 11712803 (Version 1)
Quarter: 2015Q4

REPORT INFORMATION
  Report Type: Spontaneous
  Country: US (occurrence: US)
  Receive Date: 20151104
  Receipt Date: 20151104
  Transmission Date: 20160304
  Serious: No
  Sender: FDA-Public Use
  Company Number: US-ELI_LILLY_AND_COMPANY-US201102000060

PATIENT
  Age: 67 Year
  Sex: Female

DRUGS (2)
  1. FORTEO [Suspect]
     Active Substance: TERIPARATIDE
     Indication: OSTEOPOROSIS
     Dosage: 20 UG, QD
  2. FORTEO [Suspect]
     Active Substance: TERIPARATIDE
     Dosage: 20 UG, QD

REACTIONS (7)
  - Gastrointestinal disorder [Unknown]
  - Nausea [Unknown]
  - Bowel movement irregularity [Unknown]
  - Intentional product misuse [Unknown]
  - Vitamin D decreased [Unknown]
  - Blood calcium increased [Recovering/Resolving]
  - Abdominal pain upper [Unknown]
